FAERS Safety Report 15426686 (Version 1)
Quarter: 2018Q3

REPORT INFORMATION
  Report Type: Spontaneous
  Country: US (occurrence: US)
  Receive Date: 20180925
  Receipt Date: 20180925
  Transmission Date: 20181010
  Serious: No
  Sender: FDA-Public Use
  Company Number: US-MAYNE PHARMA-2018MYN000800

PATIENT

DRUGS (2)
  1. CLONIDINE. [Suspect]
     Active Substance: CLONIDINE
     Indication: HYPERTENSION
     Dosage: 0.2 MG, QWEEK
     Route: 062
     Dates: start: 2016
  2. BISACODYL. [Suspect]
     Active Substance: BISACODYL
     Indication: CONSTIPATION
     Dosage: UNK
     Route: 048
     Dates: start: 2014

REACTIONS (9)
  - Fall [Unknown]
  - Blood pressure increased [Not Recovered/Not Resolved]
  - Intentional product misuse [Unknown]
  - Retching [Not Recovered/Not Resolved]
  - Pelvic floor muscle weakness [Unknown]
  - Dizziness [Not Recovered/Not Resolved]
  - Abdominal pain [Not Recovered/Not Resolved]
  - Constipation [Not Recovered/Not Resolved]
  - Nausea [Not Recovered/Not Resolved]

NARRATIVE: CASE EVENT DATE: 2014
